FAERS Safety Report 8991925 (Version 2)
Quarter: 2013Q2

REPORT INFORMATION
  Report Type: Report from Study
  Country: NL (occurrence: NL)
  Receive Date: 20121231
  Receipt Date: 20130527
  Transmission Date: 20140414
  Serious: Yes (Hospitalization)
  Sender: FDA-Public Use
  Company Number: NL-ROCHE-1174537

PATIENT
  Age: 50 Year
  Sex: Female

DRUGS (5)
  1. BEVACIZUMAB [Suspect]
     Indication: BREAST CANCER
     Route: 042
     Dates: start: 20121121, end: 20121205
  2. PACLITAXEL [Suspect]
     Indication: BREAST CANCER
     Route: 042
     Dates: start: 20121121, end: 20121205
  3. BUDESONIDE [Concomitant]
     Route: 065
     Dates: start: 20100101
  4. METOCLOPRAMIDE [Concomitant]
     Route: 065
     Dates: start: 20121120
  5. TIOTROPIUM [Concomitant]
     Route: 065
     Dates: start: 20100101

REACTIONS (1)
  - Infusion site extravasation [Recovered/Resolved with Sequelae]
